FAERS Safety Report 16378206 (Version 1)
Quarter: 2019Q2

REPORT INFORMATION
  Report Type: Spontaneous
  Country: US (occurrence: US)
  Receive Date: 20190531
  Receipt Date: 20190531
  Transmission Date: 20190711
  Serious: No
  Sender: FDA-Public Use
  Company Number: US-TEVA-2019-US-1034524

PATIENT
  Sex: Female

DRUGS (1)
  1. TAMOXIFEN CITRATE. [Suspect]
     Active Substance: TAMOXIFEN CITRATE
     Indication: BREAST CANCER
     Route: 065
     Dates: start: 201502

REACTIONS (6)
  - Adverse drug reaction [Unknown]
  - Arthralgia [Unknown]
  - Alopecia [Unknown]
  - Fatigue [Unknown]
  - Insomnia [Unknown]
  - Depression [Unknown]
